FAERS Safety Report 16957665 (Version 3)
Quarter: 2019Q4

REPORT INFORMATION
  Report Type: Spontaneous
  Country: DE (occurrence: DE)
  Receive Date: 20191024
  Receipt Date: 20191122
  Transmission Date: 20200122
  Serious: Yes (Other)
  Sender: FDA-Public Use
  Company Number: DE-BAUSCH-BL-2019-058056

PATIENT
  Sex: Male

DRUGS (2)
  1. OFLOXACIN-OPHTAL 3 MG/ML AUGENTROPFEN [Suspect]
     Active Substance: OFLOXACIN
     Indication: OCULAR HYPERAEMIA
     Route: 065
  2. OFLOXACIN-OPHTAL 3 MG/ML AUGENTROPFEN [Suspect]
     Active Substance: OFLOXACIN
     Indication: EYE INFLAMMATION

REACTIONS (3)
  - Vitreous injury [Unknown]
  - Injury corneal [Unknown]
  - Product deposit [Unknown]

NARRATIVE: CASE EVENT DATE: 201906
